FAERS Safety Report 10444568 (Version 1)
Quarter: 2014Q3

REPORT INFORMATION
  Report Type: Spontaneous
  Country: US (occurrence: None)
  Receive Date: 20140909
  Receipt Date: 20140909
  Transmission Date: 20150326
  Serious: Yes (Other)
  Sender: FDA-Public Use
  Company Number: None

PATIENT
  Age: 56 Year
  Sex: Male
  Weight: 111.13 kg

DRUGS (1)
  1. CRESTOR [Suspect]
     Active Substance: ROSUVASTATIN CALCIUM
     Indication: BLOOD CHOLESTEROL ABNORMAL

REACTIONS (8)
  - Fatigue [None]
  - Cardiac disorder [None]
  - Ventricular extrasystoles [None]
  - Blood creatinine increased [None]
  - Arthralgia [None]
  - Muscle spasms [None]
  - Blood creatine phosphokinase increased [None]
  - Respiratory disorder [None]

NARRATIVE: CASE EVENT DATE: 20140829
